FAERS Safety Report 25325286 (Version 1)
Quarter: 2025Q2

REPORT INFORMATION
  Report Type: Spontaneous
  Country: US (occurrence: US)
  Receive Date: 20250516
  Receipt Date: 20250516
  Transmission Date: 20250716
  Serious: Yes (Other)
  Sender: NOVARTIS
  Company Number: US-002147023-NVSC2025US075548

PATIENT
  Sex: Female

DRUGS (4)
  1. LETROZOLE [Suspect]
     Active Substance: LETROZOLE
     Indication: Foetal exposure during pregnancy
     Route: 064
  2. RIBOCICLIB [Suspect]
     Active Substance: RIBOCICLIB
     Indication: Foetal exposure during pregnancy
     Route: 064
  3. LEUPROLIDE [Suspect]
     Active Substance: LEUPROLIDE
     Indication: Foetal exposure during pregnancy
     Route: 064
  4. DENOSUMAB [Suspect]
     Active Substance: DENOSUMAB
     Indication: Foetal exposure during pregnancy
     Route: 064

REACTIONS (3)
  - Premature baby [Unknown]
  - Virilism [Recovering/Resolving]
  - Foetal exposure during pregnancy [Unknown]
